FAERS Safety Report 17594240 (Version 2)
Quarter: 2020Q2

REPORT INFORMATION
  Report Type: Spontaneous
  Country: FR (occurrence: FR)
  Receive Date: 20200327
  Receipt Date: 20200410
  Transmission Date: 20200713
  Serious: Yes (Other)
  Sender: FDA-Public Use
  Company Number: FR-ALLERGAN-2013253US

PATIENT
  Sex: Male

DRUGS (4)
  1. SILODOSIN - BP [Suspect]
     Active Substance: SILODOSIN
     Indication: URINARY TRACT DISORDER
  2. SILODOSIN - BP [Suspect]
     Active Substance: SILODOSIN
     Indication: BENIGN PROSTATIC HYPERPLASIA
     Dosage: 8 MG, QD
     Route: 048
     Dates: start: 202002, end: 202002
  3. IRBESARTAN. [Concomitant]
     Active Substance: IRBESARTAN
     Dosage: 300 MG, QD
     Route: 048
     Dates: start: 2018
  4. FLECAINE [Concomitant]
     Active Substance: FLECAINIDE
     Dosage: 100 MG, QD
     Route: 048
     Dates: start: 2018, end: 2018

REACTIONS (4)
  - Dyspnoea at rest [Recovered/Resolved]
  - Anxiety [Recovered/Resolved]
  - Nasal congestion [Recovered/Resolved]
  - Lymphopenia [Unknown]

NARRATIVE: CASE EVENT DATE: 202002
